FAERS Safety Report 12606599 (Version 2)
Quarter: 2016Q3

REPORT INFORMATION
  Report Type: Spontaneous
  Country: US (occurrence: US)
  Receive Date: 20160729
  Receipt Date: 20160813
  Transmission Date: 20161109
  Serious: No
  Sender: FDA-Public Use
  Company Number: PHEH2016US018293

PATIENT
  Sex: Male

DRUGS (1)
  1. AFINITOR [Suspect]
     Active Substance: EVEROLIMUS
     Indication: THYROID CANCER
     Dosage: 5 MG, QD
     Route: 048
     Dates: start: 20160521, end: 20160808

REACTIONS (2)
  - Product use issue [Unknown]
  - Malignant neoplasm progression [Not Recovered/Not Resolved]
